FAERS Safety Report 5747020-2 (Version None)
Quarter: 2008Q2

REPORT INFORMATION
  Report Type: 
  Country: None (occurrence: None)
  Receive Date: 20080520
  Receipt Date: 20080506
  Transmission Date: 20081010
  Serious: Yes (Hospitalization)
  Sender: FDA-Public Use
  Company Number: 2008BI006930

PATIENT
  Age: 60 Year
  Sex: Female

DRUGS (2)
  1. AVONEX [Suspect]
     Indication: MULTIPLE SCLEROSIS
     Dosage: 30 UG;QW;IM
     Route: 030
     Dates: start: 19960101
  2. ENBREL [Concomitant]

REACTIONS (7)
  - ABSCESS [None]
  - CONTUSION [None]
  - INFECTION [None]
  - PAIN [None]
  - SWELLING [None]
  - VEIN DISORDER [None]
  - WOUND [None]
